FAERS Safety Report 4845122-6 (Version None)
Quarter: 2005Q4

REPORT INFORMATION
  Report Type: 
  Country: None (occurrence: None)
  Receive Date: 20051115
  Receipt Date: 20050919
  Transmission Date: 20060501
  Serious: Yes (Other)
  Sender: FDA-Public Use
  Company Number: 418392

PATIENT
  Age: 49 Year
  Sex: Female
  Weight: 70.3 kg

DRUGS (3)
  1. PEGASYS [Suspect]
     Indication: HEPATITIS C
     Dosage: 180 MCG 1 PER WEEK SUBCUTANEOUS
     Route: 058
     Dates: start: 20050311
  2. COPEGUS [Suspect]
     Indication: HEPATITIS C
     Dosage: 1000 MG DAILY ORAL
     Route: 048
     Dates: start: 20050311
  3. COMPAZINE [Concomitant]

REACTIONS (3)
  - HAEMOGLOBIN DECREASED [None]
  - WHITE BLOOD CELL COUNT DECREASED [None]
  - WHITE BLOOD CELL DISORDER [None]
